FAERS Safety Report 8814576 (Version 2)
Quarter: 2012Q4

REPORT INFORMATION
  Report Type: Spontaneous
  Country: US (occurrence: None)
  Receive Date: 20120926
  Receipt Date: 20121010
  Transmission Date: 20130627
  Serious: Yes (Hospitalization)
  Sender: FDA-Public Use
  Company Number: 139177

PATIENT
  Age: 41 Year
  Sex: Male

DRUGS (9)
  1. CYTARABINE [Suspect]
     Indication: STEM CELL TRANSPLANT
     Dosage: 360 MG INTRAVENOUSLY EVERY 12 HOURS FOR 8 DAYS
     Route: 042
     Dates: start: 201204, end: 20120426
  2. CYTARABINE [Suspect]
     Indication: HODGKIN^S LYMPHOMA
     Dosage: 360 MG INTRAVENOUSLY EVERY 12 HOURS FOR 8 DAYS
     Route: 042
     Dates: start: 201204, end: 20120426
  3. ACYCLOVIR [Concomitant]
  4. DARUNAVIR [Concomitant]
  5. SINGULAIR [Concomitant]
  6. MORPHINE [Concomitant]
  7. PANTOPRAZOLE [Concomitant]
  8. RETONAVIR [Concomitant]
  9. RALTEGRAVIR [Concomitant]

REACTIONS (5)
  - Stem cell transplant [None]
  - Rash [None]
  - Convulsion [None]
  - Rib fracture [None]
  - Cardio-respiratory arrest [None]
